FAERS Safety Report 9634519 (Version 8)
Quarter: 2014Q1

REPORT INFORMATION
  Report Type: Spontaneous
  Country: US (occurrence: US)
  Receive Date: 20131021
  Receipt Date: 20140321
  Transmission Date: 20141002
  Serious: Yes (Other)
  Sender: FDA-Public Use
  Company Number: US-PFIZER INC-2013297311

PATIENT
  Age: 68 Year
  Sex: Female
  Weight: 136 kg

DRUGS (14)
  1. LIPITOR [Suspect]
     Indication: LOW DENSITY LIPOPROTEIN INCREASED
     Dosage: UNK
     Route: 048
     Dates: start: 199711, end: 200703
  2. LIPITOR [Suspect]
     Indication: CARDIOVASCULAR EVENT PROPHYLAXIS
     Dosage: 10 MG, 1X/DAY
     Route: 048
     Dates: start: 19971125
  3. LIPITOR [Suspect]
     Dosage: 20 MG, 1X/DAY
     Route: 048
     Dates: start: 19971223
  4. LIPITOR [Suspect]
     Dosage: 40 MG, 1X/DAY
     Route: 048
     Dates: start: 20041206
  5. SYNTHROID [Concomitant]
     Dosage: UNK
  6. PREMARIN [Concomitant]
     Dosage: UNK
  7. CYCLOBENZAPRINE [Concomitant]
     Dosage: UNK
  8. MULTIVITAMINS [Concomitant]
     Dosage: UNK
  9. TUMS [Concomitant]
     Dosage: UNK
  10. PREDNISONE [Concomitant]
     Dosage: UNK
  11. FOSAMAX [Concomitant]
     Dosage: UNK
  12. LISINOPRIL [Concomitant]
     Dosage: UNK
  13. RANITIDINE [Concomitant]
     Dosage: UNK
  14. MOBIC [Concomitant]
     Dosage: UNK

REACTIONS (1)
  - Type 2 diabetes mellitus [Unknown]
